FAERS Safety Report 4458430-8 (Version None)
Quarter: 2004Q3

REPORT INFORMATION
  Report Type: 
  Country: None (occurrence: None)
  Receive Date: 20040922
  Receipt Date: 20040909
  Transmission Date: 20050211
  Serious: Yes (Hospitalization)
  Sender: FDA-Public Use
  Company Number: 04P-066-0273376-00

PATIENT
  Sex: Male

DRUGS (3)
  1. KALETRA [Suspect]
     Indication: HIV INFECTION
     Dosage: 3 CAPSULE, 2 IN 1 D, PER ORAL
     Route: 048
     Dates: start: 20040521, end: 20040721
  2. ZIDOVUDINE W/LAMIVUDINE [Concomitant]
  3. METHYLPREDNISOL (METHYLPREDNISOLONE) [Concomitant]

REACTIONS (4)
  - ABDOMINAL PAIN [None]
  - HYPERTRIGLYCERIDAEMIA [None]
  - IDIOPATHIC THROMBOCYTOPENIC PURPURA [None]
  - URINE AMYLASE INCREASED [None]
